FAERS Safety Report 9762815 (Version 1)
Quarter: 2013Q4

REPORT INFORMATION
  Report Type: Spontaneous
  Country: US (occurrence: US)
  Receive Date: 20131216
  Receipt Date: 20131216
  Transmission Date: 20140711
  Serious: Yes (Hospitalization)
  Sender: FDA-Public Use
  Company Number: US-FRI-1000052226

PATIENT
  Sex: Male

DRUGS (2)
  1. TUDORZA PRESSAIR [Suspect]
  2. FLOVENT [Concomitant]

REACTIONS (1)
  - Respiratory tract infection [Unknown]
